FAERS Safety Report 9948263 (Version 2)
Quarter: 2014Q2

REPORT INFORMATION
  Report Type: Spontaneous
  Country: US (occurrence: None)
  Receive Date: 20140122
  Receipt Date: 20140425
  Transmission Date: 20141212
  Serious: No
  Sender: FDA-Public Use
  Company Number: AP356-00283-SPO-US

PATIENT
  Age: 28 Year
  Sex: Female
  Weight: 122.2 kg

DRUGS (1)
  1. BELVIQ (LORCASERIN HYDROCHLORIDE) [Suspect]
     Indication: WEIGHT DECREASED
     Route: 048
     Dates: start: 20131108, end: 20131111

REACTIONS (2)
  - Amnesia [None]
  - Confusional state [None]
